FAERS Safety Report 12660940 (Version 2)
Quarter: 2016Q3

REPORT INFORMATION
  Report Type: Spontaneous
  Country: US (occurrence: US)
  Receive Date: 20160817
  Receipt Date: 20160901
  Transmission Date: 20161109
  Serious: No
  Sender: FDA-Public Use
  Company Number: US-RELYPSA-RLY2016001376

PATIENT
  Sex: Male

DRUGS (3)
  1. GLIMEPIRIDE. [Concomitant]
     Active Substance: GLIMEPIRIDE
     Indication: DIABETES MELLITUS
     Dosage: UNK, BID
     Route: 048
  2. INSULIN [Concomitant]
     Active Substance: INSULIN NOS
     Dosage: 5 U, BID
     Route: 058
  3. VELTASSA [Suspect]
     Active Substance: PATIROMER
     Indication: HYPERKALAEMIA
     Dosage: 8.4 G, UNK
     Dates: start: 20160616

REACTIONS (6)
  - Blood glucose decreased [Unknown]
  - Medication residue present [Unknown]
  - Decreased appetite [Unknown]
  - Diarrhoea [Unknown]
  - Unevaluable event [Unknown]
  - Product preparation error [Unknown]

NARRATIVE: CASE EVENT DATE: 2016
